FAERS Safety Report 17080310 (Version 2)
Quarter: 2020Q3

REPORT INFORMATION
  Report Type: Spontaneous
  Country: NL (occurrence: NL)
  Receive Date: 20191127
  Receipt Date: 20200720
  Transmission Date: 20201102
  Serious: Yes (Life-Threatening, Hospitalization)
  Sender: FDA-Public Use
  Company Number: NL-TEVA-2019-NL-1141918

PATIENT
  Age: 66 Year
  Sex: Male

DRUGS (8)
  1. ALLOPURINOL 300 MG [Concomitant]
     Active Substance: ALLOPURINOL
     Dosage: 1DD1, 300 MG, THERAPY START DATE : ASKU, THERAPY END DATE : ASKU
  2. SIMVASTATINE 40 MG [Concomitant]
     Active Substance: SIMVASTATIN
     Dosage: 1DD1, 40 MG, THERAPY START DATE : ASKU, THERAPY END DATE : ASKU
  3. DICLOFENAC 50 MG [Concomitant]
     Active Substance: DICLOFENAC
     Dosage: THERAPY START DATE : ASKU, THERAPY END DATE : ASKU
  4. OMEPRAZOL 20 MG [Concomitant]
     Active Substance: OMEPRAZOLE
     Dosage: 1?2DD1, 20 MG, THERAPY START DATE : ASKU, THERAPY END DATE : ASKU
  5. LISINOPRIL TABLET, 10 MG (MILLIGRAM) [Suspect]
     Active Substance: LISINOPRIL
     Indication: PRODUCT USED FOR UNKNOWN INDICATION
     Dosage: 10 MILLIGRAM DAILY;
     Dates: start: 2018, end: 20190904
  6. AMLODIPINE [Concomitant]
     Active Substance: AMLODIPINE BESYLATE
     Dosage: 1DD1, 5 MG, THERAPY START DATE : ASKU, THERAPY END DATE : ASKU
  7. METOPROLOL SUC 100 MG [Concomitant]
     Dosage: 1DD1, 100 MG, THERAPY START DATE : ASKU, THERAPY END DATE : ASKU
  8. HYDROCHLOORTHIAZIDE 12.5 MG [Concomitant]
     Dosage: 1DD1, 12 MG, THERAPY START DATE : ASKU, THERAPY END DATE : ASKU

REACTIONS (3)
  - Intestinal angioedema [Recovered/Resolved]
  - Pharyngeal swelling [Recovered/Resolved]
  - Ileus [Recovered/Resolved]

NARRATIVE: CASE EVENT DATE: 20190904
